FAERS Safety Report 14570091 (Version 1)
Quarter: 2018Q1

REPORT INFORMATION
  Report Type: Spontaneous
  Country: US (occurrence: US)
  Receive Date: 20180225
  Receipt Date: 20180225
  Transmission Date: 20180509
  Serious: Yes (Other)
  Sender: FDA-Public Use
  Company Number: US-009507513-1802USA010710

PATIENT
  Age: 25 Year
  Sex: Female
  Weight: 55.78 kg

DRUGS (1)
  1. NEXPLANON [Suspect]
     Active Substance: ETONOGESTREL
     Indication: CONTRACEPTION
     Dosage: 1 DF, EVERY 3 YEARS
     Route: 059
     Dates: start: 20150715

REACTIONS (6)
  - Unintended pregnancy [Unknown]
  - Abdominal pain lower [Unknown]
  - Nipple pain [Unknown]
  - Pregnancy with implant contraceptive [Unknown]
  - Pelvic pain [Unknown]
  - Nausea [Unknown]

NARRATIVE: CASE EVENT DATE: 201801
